FAERS Safety Report 6786727-5 (Version None)
Quarter: 2010Q2

REPORT INFORMATION
  Report Type: 
  Country: None (occurrence: None)
  Receive Date: 20100623
  Receipt Date: 20100611
  Transmission Date: 20101027
  Serious: Yes (Other)
  Sender: FDA-Public Use
  Company Number: US-BAYER-201025659NA

PATIENT
  Age: 49 Year
  Sex: Male
  Weight: 93 kg

DRUGS (3)
  1. ULTRAVIST 370 [Suspect]
     Indication: COMPUTERISED TOMOGRAM ABDOMEN
     Dosage: TOTAL DAILY DOSE: 100 ML  UNIT DOSE: 500 ML
     Route: 042
  2. NEXIUM [Concomitant]
  3. NASALIDE [Concomitant]

REACTIONS (4)
  - FLUSHING [None]
  - HYPERSENSITIVITY [None]
  - PERIORBITAL OEDEMA [None]
  - URTICARIA [None]
